FAERS Safety Report 12072333 (Version 2)
Quarter: 2016Q1

REPORT INFORMATION
  Report Type: Spontaneous
  Country: AT (occurrence: AT)
  Receive Date: 20160212
  Receipt Date: 20160311
  Transmission Date: 20160526
  Serious: Yes (Hospitalization, Other)
  Sender: FDA-Public Use
  Company Number: AT-BAYER-2015-030024

PATIENT
  Age: 24 Year
  Sex: Female

DRUGS (3)
  1. FLOXACILLIN [Concomitant]
     Active Substance: FLUCLOXACILLIN
     Dosage: 500 MG, UNK
  2. YASMIN [Suspect]
     Active Substance: DROSPIRENONE\ETHINYL ESTRADIOL
     Dosage: UNK
     Dates: start: 200812, end: 200906
  3. YASMINELLE [Suspect]
     Active Substance: DROSPIRENONE
     Indication: CONTRACEPTION
     Dosage: UNK
     Dates: start: 20071029, end: 200812

REACTIONS (11)
  - Deep vein thrombosis [Recovering/Resolving]
  - Discomfort [Recovering/Resolving]
  - Cellulitis [None]
  - Pain [Recovering/Resolving]
  - Pain in extremity [None]
  - Abscess limb [None]
  - Erythema [Recovering/Resolving]
  - Autonomic nervous system imbalance [None]
  - Venous valve ruptured [None]
  - Arthralgia [Recovering/Resolving]
  - Peripheral swelling [Recovering/Resolving]

NARRATIVE: CASE EVENT DATE: 2009
